FAERS Safety Report 4922106-0 (Version None)
Quarter: 2006Q1

REPORT INFORMATION
  Report Type: 
  Country: None (occurrence: None)
  Receive Date: 20060222
  Receipt Date: 20060222
  Transmission Date: 20060701
  Serious: Yes (Hospitalization)
  Sender: FDA-Public Use
  Company Number: None

PATIENT
  Age: 60 Year
  Sex: Male
  Weight: 85.7298 kg

DRUGS (8)
  1. LISINOPRIL [Suspect]
     Indication: BLOOD PRESSURE
     Dosage: 20 MG DAILY
  2. METFORMIN [Concomitant]
  3. LISINOPRIL [Concomitant]
  4. ALLOPURINOL [Concomitant]
  5. PLAVIX [Concomitant]
  6. WELLBUTRIN [Concomitant]
  7. ZOCOR [Concomitant]
  8. PRILOSEC [Concomitant]

REACTIONS (3)
  - ARRHYTHMIA [None]
  - BLOOD POTASSIUM INCREASED [None]
  - CHEST PAIN [None]
